FAERS Safety Report 8306382-2 (Version None)
Quarter: 2012Q2

REPORT INFORMATION
  Report Type: 
  Country: None (occurrence: None)
  Receive Date: 20120423
  Receipt Date: 20120417
  Transmission Date: 20120825
  Serious: Yes (Hospitalization, Disabling, Other)
  Sender: FDA-Public Use
  Company Number: US-MERCK-1110USA01560

PATIENT
  Sex: Female

DRUGS (4)
  1. FOSAMAX [Suspect]
     Indication: OSTEOPENIA
     Route: 048
  2. FOSAMAX [Suspect]
     Route: 048
     Dates: start: 20021121
  3. FOSAMAX [Suspect]
     Route: 065
     Dates: start: 20100122, end: 20101217
  4. BONIVA [Concomitant]
     Indication: OSTEOPENIA
     Route: 065
     Dates: end: 20080601

REACTIONS (9)
  - IMPAIRED HEALING [None]
  - ADVERSE EVENT [None]
  - HYPOTHYROIDISM [None]
  - FRACTURE NONUNION [None]
  - DEPRESSION [None]
  - FEMUR FRACTURE [None]
  - ARTHROPATHY [None]
  - ANXIETY [None]
  - PAIN [None]
